FAERS Safety Report 12760300 (Version 2)
Quarter: 2016Q3

REPORT INFORMATION
  Report Type: Spontaneous
  Country: IT (occurrence: IT)
  Receive Date: 20160919
  Receipt Date: 20160927
  Transmission Date: 20161109
  Serious: Yes (Death)
  Sender: FDA-Public Use
  Company Number: IT-JNJFOC-20160915545

PATIENT
  Age: 90 Year
  Sex: Male

DRUGS (7)
  1. MIRTAZAPINE. [Concomitant]
     Active Substance: MIRTAZAPINE
     Route: 065
  2. SEQUACOR [Concomitant]
     Active Substance: BISOPROLOL
     Route: 065
  3. XARELTO [Suspect]
     Active Substance: RIVAROXABAN
     Indication: ATRIAL FIBRILLATION
     Route: 048
     Dates: start: 20150403, end: 20150513
  4. LASIX [Concomitant]
     Active Substance: FUROSEMIDE
     Route: 065
  5. METFORAL [Concomitant]
     Active Substance: METFORMIN HYDROCHLORIDE
     Route: 065
  6. BLOPRESS [Concomitant]
     Active Substance: CANDESARTAN CILEXETIL
     Route: 065
  7. XARELTO [Suspect]
     Active Substance: RIVAROXABAN
     Indication: CEREBROVASCULAR ACCIDENT PROPHYLAXIS
     Route: 048
     Dates: start: 20150403, end: 20150513

REACTIONS (5)
  - Respiratory failure [Fatal]
  - Cerebral haemorrhage [Fatal]
  - Coma [Fatal]
  - Hemiparesis [Fatal]
  - Pulmonary oedema [Fatal]

NARRATIVE: CASE EVENT DATE: 20150513
